FAERS Safety Report 7775533 (Version 4)
Quarter: 2014Q1

REPORT INFORMATION
  Report Type: Spontaneous
  Country: US (occurrence: US)
  Receive Date: 20110127
  Receipt Date: 20140120
  Transmission Date: 20141002
  Serious: Yes (Hospitalization)
  Sender: FDA-Public Use
  Company Number: US-BIOGENIDEC-2011BI001963

PATIENT
  Age: 52 Year
  Sex: Female
  Weight: 85 kg

DRUGS (2)
  1. TYSABRI [Suspect]
     Indication: MULTIPLE SCLEROSIS
     Route: 042
     Dates: start: 200905
  2. DELATIN (NOS PAINKILLER) [Concomitant]

REACTIONS (13)
  - Suicide attempt [Recovered/Resolved]
  - Grand mal convulsion [Recovered/Resolved]
  - Headache [Recovered/Resolved]
  - Diarrhoea [Recovered/Resolved]
  - Vertigo [Recovered/Resolved]
  - Nausea [Recovered/Resolved]
  - Rhinorrhoea [Recovered/Resolved]
  - Sneezing [Recovered/Resolved]
  - Oropharyngeal pain [Recovered/Resolved]
  - Cough [Recovered/Resolved]
  - Blepharospasm [Recovered/Resolved]
  - Vibratory sense increased [Recovered/Resolved]
  - Loss of consciousness [Recovered/Resolved]
